FAERS Safety Report 10045626 (Version 1)
Quarter: 2014Q1

REPORT INFORMATION
  Report Type: Spontaneous
  Country: FR (occurrence: FR)
  Receive Date: 20140328
  Receipt Date: 20140328
  Transmission Date: 20141002
  Serious: Yes (Death, Other)
  Sender: FDA-Public Use
  Company Number: FR-PFIZER INC-2014086687

PATIENT
  Age: 74 Year
  Sex: Male

DRUGS (6)
  1. LYRICA [Suspect]
     Dosage: UNK
  2. BIPROFENID [Suspect]
     Dosage: UNK
     Dates: start: 20140123
  3. LAROXYL [Suspect]
     Dosage: UNK
  4. DUROGESIC [Suspect]
     Dosage: UNK
     Dates: start: 20140123
  5. MOPRAL [Concomitant]
  6. SPASFON [Concomitant]

REACTIONS (7)
  - Renal failure acute [Fatal]
  - Intestinal ischaemia [Unknown]
  - Colon cancer [Unknown]
  - Large intestine perforation [Unknown]
  - Peritonitis [Unknown]
  - Large intestinal stenosis [Unknown]
  - Abdominal pain [Unknown]
